FAERS Safety Report 4281166-3 (Version None)
Quarter: 2004Q1

REPORT INFORMATION
  Report Type: 
  Country: None (occurrence: None)
  Receive Date: 20040116
  Receipt Date: 20031112
  Transmission Date: 20041129
  Serious: Yes (Other)
  Sender: FDA-Public Use
  Company Number: HQWYE148017NOV03

PATIENT

DRUGS (1)
  1. PROTONIX [Suspect]
     Dosage: DOSE REGIMEN UNKNOWN, INTRAVENOUS
     Route: 042

REACTIONS (1)
  - INJECTION SITE EXTRAVASATION [None]
